FAERS Safety Report 15763786 (Version 1)
Quarter: 2018Q4

REPORT INFORMATION
  Report Type: Report from Study
  Country: DE (occurrence: DE)
  Receive Date: 20181227
  Receipt Date: 20181227
  Transmission Date: 20190205
  Serious: Yes (Hospitalization, Other)
  Sender: FDA-Public Use
  Company Number: DE-TEVA-2018-DE-991328

PATIENT
  Age: 2 Year
  Sex: Female
  Weight: 13 kg

DRUGS (5)
  1. METHOTREXAT [Suspect]
     Active Substance: METHOTREXATE
     Indication: ACUTE LYMPHOCYTIC LEUKAEMIA
     Dosage: PER WEEK
     Route: 048
     Dates: start: 200303
  2. METHOTREXAT [Suspect]
     Active Substance: METHOTREXATE
     Indication: ACUTE LYMPHOCYTIC LEUKAEMIA
     Route: 042
     Dates: start: 20020725, end: 20020725
  3. METHOTREXAT [Suspect]
     Active Substance: METHOTREXATE
     Indication: ACUTE LYMPHOCYTIC LEUKAEMIA
     Route: 042
     Dates: start: 20020812, end: 20020812
  4. METHOTREXAT [Suspect]
     Active Substance: METHOTREXATE
     Dosage: 12 X 8MG
     Route: 037
     Dates: start: 20030224
  5. GLIVEC [Suspect]
     Active Substance: IMATINIB MESYLATE
     Indication: ACUTE LYMPHOCYTIC LEUKAEMIA
     Dosage: 300 MILLIGRAM DAILY;
     Route: 048
     Dates: start: 20020516, end: 20030419

REACTIONS (8)
  - Encephalopathy [Recovering/Resolving]
  - Mental impairment [Recovering/Resolving]
  - Gait disturbance [Recovering/Resolving]
  - Motor dysfunction [Recovering/Resolving]
  - Gastroenteritis [Recovered/Resolved]
  - Nuclear magnetic resonance imaging brain abnormal [Unknown]
  - Nervous system disorder [Recovering/Resolving]
  - Abnormal behaviour [Recovering/Resolving]

NARRATIVE: CASE EVENT DATE: 200304
